FAERS Safety Report 17800986 (Version 1)
Quarter: 2020Q2

REPORT INFORMATION
  Report Type: Spontaneous
  Country: CA (occurrence: CA)
  Receive Date: 20200519
  Receipt Date: 20200519
  Transmission Date: 20200714
  Serious: Yes (Death)
  Sender: FDA-Public Use
  Company Number: CA-ROCHE-2603159

PATIENT
  Age: 67 Year
  Sex: Male

DRUGS (4)
  1. METHYLPREDNISOLONE. [Suspect]
     Active Substance: METHYLPREDNISOLONE
     Indication: CHOLANGITIS SCLEROSING
     Route: 042
  2. TACROLIMUS. [Suspect]
     Active Substance: TACROLIMUS
     Indication: CHOLANGITIS SCLEROSING
     Route: 065
  3. MYCOPHENOLATE MOFETIL. [Suspect]
     Active Substance: MYCOPHENOLATE MOFETIL
     Indication: CHOLANGITIS SCLEROSING
     Route: 065
  4. PREDNISONE. [Suspect]
     Active Substance: PREDNISONE
     Indication: CHOLANGITIS SCLEROSING
     Route: 065

REACTIONS (1)
  - Cholestatic liver injury [Fatal]
